FAERS Safety Report 10197529 (Version 1)
Quarter: 2014Q2

REPORT INFORMATION
  Report Type: Report from Study
  Country: CA (occurrence: CA)
  Receive Date: 20140527
  Receipt Date: 20140527
  Transmission Date: 20141212
  Serious: Yes (Death, Hospitalization)
  Sender: FDA-Public Use
  Company Number: CA-B.I. PHARMACEUTICALS,INC./RIDGEFIELD-2014-BI-23320CN

PATIENT
  Age: 63 Year
  Sex: Male
  Weight: 90 kg

DRUGS (3)
  1. CLONIDINE [Suspect]
     Indication: PELVIC PAIN
     Dosage: 72 MCG
     Route: 050
     Dates: start: 20131023
  2. BUPIVACAINE [Concomitant]
     Indication: PELVIC PAIN
     Dosage: 12 MG
     Route: 050
     Dates: start: 20131019
  3. MORPHINE [Concomitant]
     Indication: PELVIC PAIN
     Dosage: 1.2 MCG
     Route: 050
     Dates: start: 20131019

REACTIONS (2)
  - Metastatic carcinoma of the bladder [Fatal]
  - Pain [Unknown]
